FAERS Safety Report 4458826-4 (Version None)
Quarter: 2004Q3

REPORT INFORMATION
  Report Type: 
  Country: None (occurrence: None)
  Receive Date: 20040920
  Receipt Date: 20040920
  Transmission Date: 20050211
  Serious: Yes (Life-Threatening, Other)
  Sender: FDA-Public Use
  Company Number: None

PATIENT
  Age: 9 Year
  Sex: Male
  Weight: 34.4734 kg

DRUGS (3)
  1. METHADONE 40MG PILL FORM [Suspect]
  2. METADATE 40 ONCE DAILY ORAL [Suspect]
     Indication: ATTENTION DEFICIT/HYPERACTIVITY DISORDER
     Route: 048
  3. CLONIDINE [Suspect]
     Indication: PSYCHOMOTOR HYPERACTIVITY
     Route: 048

REACTIONS (1)
  - MEDICATION ERROR [None]
